FAERS Safety Report 8295857-0 (Version None)
Quarter: 2012Q2

REPORT INFORMATION
  Report Type: 
  Country: None (occurrence: None)
  Receive Date: 20120418
  Receipt Date: 20120411
  Transmission Date: 20120825
  Serious: Yes (Other)
  Sender: FDA-Public Use
  Company Number: US-ROCHE-552205

PATIENT
  Sex: Female
  Weight: 59 kg

DRUGS (3)
  1. DEMULEN 1/35-21 [Concomitant]
     Indication: CONTRACEPTION
     Dates: start: 19860811, end: 19870522
  2. ACCUTANE [Suspect]
     Indication: ACNE CYSTIC
     Dosage: REPORTED AS 40MG BID
     Route: 065
     Dates: start: 19861107, end: 19870411
  3. ACCUTANE [Suspect]
     Route: 065
     Dates: start: 19881125, end: 19890317

REACTIONS (10)
  - DEPRESSION [None]
  - ADJUSTMENT DISORDER [None]
  - GASTROINTESTINAL PAIN [None]
  - INFLAMMATORY BOWEL DISEASE [None]
  - COLITIS [None]
  - SUICIDAL IDEATION [None]
  - MESENTERIC VASCULAR INSUFFICIENCY [None]
  - INJURY [None]
  - DEAFNESS UNILATERAL [None]
  - HOT FLUSH [None]
